FAERS Safety Report 9245760 (Version 1)
Quarter: 2013Q2

REPORT INFORMATION
  Report Type: Spontaneous
  Country: US (occurrence: US)
  Receive Date: 20130422
  Receipt Date: 20130422
  Transmission Date: 20140414
  Serious: No
  Sender: FDA-Public Use
  Company Number: US-B.I. PHARMACEUTICALS,INC./RIDGEFIELD-2013-BI-09508BP

PATIENT
  Age: 73 Year
  Sex: Female

DRUGS (2)
  1. PRADAXA [Suspect]
  2. COUMADIN [Concomitant]

REACTIONS (3)
  - Drug hypersensitivity [Unknown]
  - Drug ineffective [Unknown]
  - Chest pain [Unknown]
